FAERS Safety Report 25664227 (Version 1)
Quarter: 2025Q3

REPORT INFORMATION
  Report Type: Report from Study
  Country: US (occurrence: US)
  Receive Date: 20250811
  Receipt Date: 20250811
  Transmission Date: 20251021
  Serious: No
  Sender: SUNOVION
  Company Number: US-SUMITOMO PHARMA SWITZERLAND GMBH-2025SPA007360

PATIENT
  Age: 84 Year
  Sex: Male

DRUGS (10)
  1. ORGOVYX [Suspect]
     Active Substance: RELUGOLIX
     Indication: Prostate cancer
     Dosage: 360 MG, SINGLE
     Route: 048
     Dates: start: 20250606, end: 20250606
  2. ORGOVYX [Suspect]
     Active Substance: RELUGOLIX
     Dosage: 120 MG, QD
     Route: 048
     Dates: start: 20250607
  3. NUBEQA [Suspect]
     Active Substance: DAROLUTAMIDE
     Indication: Product used for unknown indication
  4. CALCIUM LACTATE [Concomitant]
     Active Substance: CALCIUM LACTATE
  5. Mushroom 5 complex [Concomitant]
  6. IVERMECTIN [Concomitant]
     Active Substance: IVERMECTIN
  7. Gkb lion^s mane mushroom [Concomitant]
  8. VITAMINS [Concomitant]
     Active Substance: VITAMINS
  9. Turkey tail [Concomitant]
  10. ZINC GLYCINATE [Concomitant]
     Active Substance: ZINC GLYCINATE

REACTIONS (5)
  - Feeling abnormal [Recovering/Resolving]
  - Dizziness [Unknown]
  - Asthenia [Unknown]
  - Hot flush [Unknown]
  - Product dose omission issue [Recovered/Resolved]

NARRATIVE: CASE EVENT DATE: 20250728
